FAERS Safety Report 10052633 (Version 1)
Quarter: 2014Q1

REPORT INFORMATION
  Report Type: Spontaneous
  Country: FR (occurrence: None)
  Receive Date: 20140331
  Receipt Date: 20140331
  Transmission Date: 20141002
  Serious: Yes (Other)
  Sender: FDA-Public Use
  Company Number: 2014P1002514

PATIENT
  Age: 51 Year
  Sex: Female

DRUGS (4)
  1. ACYCLOVIR [Suspect]
  2. VANCOMYCIN [Suspect]
  3. PANTOPRAZOLE [Suspect]
  4. IMIPENEM CILASTATIN [Suspect]

REACTIONS (1)
  - Drug reaction with eosinophilia and systemic symptoms [None]
